FAERS Safety Report 4754096-8 (Version None)
Quarter: 2005Q3

REPORT INFORMATION
  Report Type: 
  Country: None (occurrence: None)
  Receive Date: 20050826
  Receipt Date: 20050519
  Transmission Date: 20060218
  Serious: Yes (Hospitalization)
  Sender: FDA-Public Use
  Company Number: US-MERCK-0505USA02362

PATIENT
  Age: 54 Year
  Sex: Female
  Weight: 84 kg

DRUGS (25)
  1. VIOXX [Suspect]
     Indication: OSTEOARTHRITIS
     Route: 048
     Dates: start: 19990201, end: 20040901
  2. VIOXX [Suspect]
     Route: 048
     Dates: start: 19990201, end: 20040901
  3. VIOXX [Suspect]
     Indication: FIBROMYALGIA
     Route: 048
     Dates: start: 19990201, end: 20040901
  4. VIOXX [Suspect]
     Route: 048
     Dates: start: 19990201, end: 20040901
  5. OXYCODONE [Concomitant]
     Route: 065
     Dates: start: 19990401
  6. OXYCONTIN [Concomitant]
     Route: 065
     Dates: start: 19990101
  7. PREMARIN [Concomitant]
     Route: 065
     Dates: start: 20020501
  8. PROTONIX [Concomitant]
     Route: 065
  9. LORCET 10/650 [Concomitant]
     Route: 065
  10. PREMPRO [Concomitant]
     Route: 065
     Dates: start: 20020501
  11. ZOLOFT [Concomitant]
     Route: 065
  12. PROZAC [Concomitant]
     Route: 065
  13. PRILOSEC [Concomitant]
     Route: 048
  14. MEDROXYPROGESTERONE ACETATE [Concomitant]
     Route: 065
     Dates: start: 20020501
  15. DETROL LA [Concomitant]
     Route: 065
  16. NEXIUM [Concomitant]
     Route: 065
  17. LORAZEPAM [Concomitant]
     Route: 065
  18. SYNTHROID [Concomitant]
     Route: 065
  19. WELLBUTRIN [Concomitant]
     Route: 065
  20. EFFEXOR [Concomitant]
     Route: 065
  21. ENDOCET [Concomitant]
     Route: 065
     Dates: start: 20040101
  22. COMBIVENT [Concomitant]
     Route: 065
  23. XANAX [Concomitant]
     Route: 065
  24. PAXIL [Concomitant]
     Route: 065
  25. HYDROCODONE BITARTRATE [Concomitant]
     Route: 065
     Dates: start: 19990101

REACTIONS (20)
  - ABDOMINAL PAIN [None]
  - ANGINA PECTORIS [None]
  - ARTHRALGIA [None]
  - BACK PAIN [None]
  - BLOOD CHOLESTEROL INCREASED [None]
  - CHOLECYSTECTOMY [None]
  - COUGH [None]
  - DRUG HYPERSENSITIVITY [None]
  - DYSPNOEA [None]
  - FIBROMYALGIA [None]
  - HYPERSENSITIVITY [None]
  - HYPERTENSION [None]
  - INSOMNIA [None]
  - MENOPAUSE [None]
  - MIGRAINE [None]
  - MYOCARDIAL INFARCTION [None]
  - NECK PAIN [None]
  - PAIN IN EXTREMITY [None]
  - THERAPEUTIC RESPONSE UNEXPECTED WITH DRUG SUBSTITUTION [None]
  - THORACIC OUTLET SYNDROME [None]
